FAERS Safety Report 9158926 (Version 1)
Quarter: 2013Q1

REPORT INFORMATION
  Report Type: Spontaneous
  Country: US (occurrence: US)
  Receive Date: 20130313
  Receipt Date: 20130313
  Transmission Date: 20140127
  Serious: No
  Sender: FDA-Public Use
  Company Number: US-BAYER-2013-031142

PATIENT
  Sex: Female

DRUGS (1)
  1. YAZ [Suspect]
     Dosage: 1 DF, QD
     Route: 048

REACTIONS (1)
  - Incorrect dose administered [None]
